FAERS Safety Report 16348629 (Version 1)
Quarter: 2019Q2

REPORT INFORMATION
  Report Type: Report from Study
  Country: DE (occurrence: DE)
  Receive Date: 20190523
  Receipt Date: 20190523
  Transmission Date: 20190711
  Serious: Yes (Hospitalization)
  Sender: FDA-Public Use
  Company Number: DE-ELI_LILLY_AND_COMPANY-DE201901000075

PATIENT
  Age: 53 Year
  Sex: Male
  Weight: 90 kg

DRUGS (5)
  1. IRINOTECAN [Concomitant]
     Active Substance: IRINOTECAN
     Indication: COLORECTAL CANCER METASTATIC
     Dosage: 180 MG/M2, UNKNOWN
     Route: 042
     Dates: start: 20180809
  2. FOLINIC ACID [Concomitant]
     Active Substance: LEUCOVORIN
     Indication: COLORECTAL CANCER METASTATIC
     Dosage: 397 MG/M2, UNKNOWN
     Route: 042
     Dates: start: 20180809
  3. 5 FU [Concomitant]
     Active Substance: FLUOROURACIL
     Indication: COLORECTAL CANCER METASTATIC
     Dosage: 397 MG/M2, UNKNOWN
     Route: 040
     Dates: start: 20180809
  4. CETUXIMAB. [Suspect]
     Active Substance: CETUXIMAB
     Indication: COLORECTAL CANCER METASTATIC
     Dosage: 247 MG/M2, UNKNOWN
     Route: 042
     Dates: start: 20180809, end: 20181219
  5. 5 FU [Concomitant]
     Active Substance: FLUOROURACIL
     Dosage: 2382 MG
     Route: 041
     Dates: start: 20180809

REACTIONS (2)
  - Pyrexia [Recovered/Resolved]
  - Dermatitis infected [Recovered/Resolved]

NARRATIVE: CASE EVENT DATE: 20181226
